FAERS Safety Report 5360167-8 (Version None)
Quarter: 2007Q2

REPORT INFORMATION
  Report Type: 
  Country: None (occurrence: None)
  Receive Date: 20070618
  Receipt Date: 20070606
  Transmission Date: 20071010
  Serious: Yes (Disabling, Other)
  Sender: FDA-Public Use
  Company Number: PHHO2007GB03529

PATIENT
  Age: 63 Year
  Sex: Female
  Weight: 73.95 kg

DRUGS (6)
  1. ZOLEDRONIC ACID [Suspect]
     Indication: METASTASES TO BONE
     Dosage: 4 MG
     Route: 042
     Dates: start: 20040825, end: 20061122
  2. ARIMIDEX [Concomitant]
  3. OSTELIN [Concomitant]
  4. PERINDOPRIL ERBUMINE [Concomitant]
     Dosage: 4 MG, QD
     Route: 048
     Dates: start: 20060201
  5. CALCIUM CHLORIDE [Concomitant]
  6. VITAMIN D [Concomitant]

REACTIONS (5)
  - GINGIVAL INFECTION [None]
  - OSTEOMYELITIS [None]
  - OSTEONECROSIS [None]
  - PAIN IN JAW [None]
  - TOOTH EXTRACTION [None]
